FAERS Safety Report 7971789-X (Version None)
Quarter: 2011Q4

REPORT INFORMATION
  Report Type: 
  Country: None (occurrence: None)
  Receive Date: 20111212
  Receipt Date: 20111202
  Transmission Date: 20120403
  Serious: Yes (Hospitalization)
  Sender: FDA-Public Use
  Company Number: US-CELGENEUS-163-21880-11120505

PATIENT
  Sex: Female
  Weight: 79.45 kg

DRUGS (22)
  1. CITRICAL [Concomitant]
     Route: 065
  2. OMEPRAZOLE [Concomitant]
     Route: 065
  3. DOXORUBICIN HCL [Concomitant]
     Route: 065
  4. FRAGMIN [Concomitant]
     Route: 065
  5. OXYCODONE HCL [Concomitant]
     Route: 065
  6. PROBIOTIC [Concomitant]
     Route: 065
  7. VELCADE [Concomitant]
     Route: 065
  8. REVLIMID [Suspect]
     Indication: MULTIPLE MYELOMA
     Dosage: 15 MILLIGRAM
     Route: 048
     Dates: start: 20110225
  9. FIORICET [Concomitant]
     Route: 065
  10. TACROLIMUS [Concomitant]
     Route: 065
  11. DEXAMETHASONE [Concomitant]
     Route: 065
  12. MEPRON [Concomitant]
     Route: 065
  13. ZOFRAN [Concomitant]
     Route: 065
  14. FUROSEMIDE [Concomitant]
     Route: 065
  15. LEVOTHYROXINE SODIUM [Concomitant]
     Route: 065
  16. LORAZEPAM [Concomitant]
     Route: 065
  17. CALCIUM CARBONATE [Concomitant]
     Route: 065
  18. FLUCONAZOLE [Concomitant]
     Route: 065
  19. VITAMIN D [Concomitant]
     Route: 065
  20. FAMVIR [Concomitant]
     Route: 065
  21. MAGNESIUM SULFATE [Concomitant]
     Route: 065
  22. VITAMIN B-12 [Concomitant]
     Route: 065

REACTIONS (1)
  - RENAL FAILURE [None]
